FAERS Safety Report 18509476 (Version 1)
Quarter: 2020Q4

REPORT INFORMATION
  Report Type: Spontaneous
  Country: US (occurrence: US)
  Receive Date: 20201117
  Receipt Date: 20201117
  Transmission Date: 20210114
  Serious: Yes (Hospitalization, Other)
  Sender: FDA-Public Use
  Company Number: US-JIANGSU HENGRUI MEDICINE CO., LTD.-2095984

PATIENT
  Age: 48 Year
  Sex: Female

DRUGS (4)
  1. DOCETAXEL INJECTION USP, 20 MG/1 ML, 80 MG/4 ML, AND 160 MG/8 ML (20 M [Suspect]
     Active Substance: DOCETAXEL
  2. INSULIN LISPRO [Concomitant]
     Active Substance: INSULIN LISPRO
  3. LOSARTAN. [Concomitant]
     Active Substance: LOSARTAN
  4. CYCLOPHOSPHAMIDE. [Suspect]
     Active Substance: CYCLOPHOSPHAMIDE

REACTIONS (1)
  - Rhabdomyolysis [Recovered/Resolved]
